FAERS Safety Report 24099561 (Version 3)
Quarter: 2025Q3

REPORT INFORMATION
  Report Type: Spontaneous
  Country: US (occurrence: US)
  Receive Date: 20240716
  Receipt Date: 20250715
  Transmission Date: 20251021
  Serious: No
  Sender: NOVO NORDISK
  Company Number: US-NOVOPROD-1212634

PATIENT
  Age: 78 Year
  Sex: Female

DRUGS (6)
  1. OZEMPIC [Suspect]
     Active Substance: SEMAGLUTIDE
     Indication: Weight control
     Route: 058
     Dates: start: 20240131
  2. OZEMPIC [Suspect]
     Active Substance: SEMAGLUTIDE
     Indication: Hypertension
     Dosage: 0.5 MG, QW
     Route: 058
     Dates: start: 20240221
  3. OZEMPIC [Suspect]
     Active Substance: SEMAGLUTIDE
     Indication: Heart rate
     Route: 058
  4. OZEMPIC [Suspect]
     Active Substance: SEMAGLUTIDE
     Indication: Weight control
     Route: 058
  5. OZEMPIC [Suspect]
     Active Substance: SEMAGLUTIDE
     Indication: Hypertension
  6. OZEMPIC [Suspect]
     Active Substance: SEMAGLUTIDE
     Indication: Heart rate

REACTIONS (8)
  - Blood pressure abnormal [Recovered/Resolved]
  - Dehydration [Unknown]
  - Urinary tract infection [Recovering/Resolving]
  - Unevaluable event [Unknown]
  - Constipation [Not Recovered/Not Resolved]
  - Off label use [Unknown]
  - Drug effect less than expected [Unknown]
  - Product communication issue [Unknown]

NARRATIVE: CASE EVENT DATE: 20240404
